FAERS Safety Report 11228269 (Version 1)
Quarter: 2015Q2

REPORT INFORMATION
  Report Type: Spontaneous
  Country: US (occurrence: None)
  Receive Date: 20150629
  Receipt Date: 20150629
  Transmission Date: 20150821
  Serious: Yes (Life-Threatening, Hospitalization)
  Sender: FDA-Public Use
  Company Number: None

PATIENT
  Age: 67 Year
  Sex: Male
  Weight: 126.4 kg

DRUGS (2)
  1. REGADENOSON [Suspect]
     Active Substance: REGADENOSON
     Indication: CARDIAC STRESS TEST
     Route: 042
     Dates: start: 20150113, end: 20150113
  2. REGADENOSON [Suspect]
     Active Substance: REGADENOSON
     Indication: ILL-DEFINED DISORDER
     Route: 042
     Dates: start: 20150113, end: 20150113

REACTIONS (6)
  - Cerebrovascular accident [None]
  - Hypotension [None]
  - Oxygen saturation decreased [None]
  - Mental status changes [None]
  - Transient ischaemic attack [None]
  - Somnolence [None]

NARRATIVE: CASE EVENT DATE: 20150113
